FAERS Safety Report 6348148-9 (Version None)
Quarter: 2009Q3

REPORT INFORMATION
  Report Type: 
  Country: None (occurrence: None)
  Receive Date: 20090908
  Receipt Date: 20090827
  Transmission Date: 20100115
  Serious: Yes (Other)
  Sender: FDA-Public Use
  Company Number: 2009SP022916

PATIENT
  Sex: Female

DRUGS (4)
  1. MIRTAZAPINE [Suspect]
     Indication: DRUG USE FOR UNKNOWN INDICATION
  2. ESTRADERM [Suspect]
     Indication: HORMONE REPLACEMENT THERAPY
     Dosage: TDER
  3. TEGRETOL [Suspect]
     Indication: BIPOLAR DISORDER
     Dosage: 600 MG;BID ; 1100 MG;D
  4. VITAMIN B6 [Concomitant]

REACTIONS (2)
  - NEUTROPENIA [None]
  - WHITE BLOOD CELL COUNT ABNORMAL [None]
